FAERS Safety Report 14902383 (Version 3)
Quarter: 2018Q2

REPORT INFORMATION
  Report Type: Spontaneous
  Country: US (occurrence: US)
  Receive Date: 20180516
  Receipt Date: 20180620
  Transmission Date: 20180711
  Serious: Yes (Other)
  Sender: FDA-Public Use
  Company Number: US-ANIPHARMA-2018-US-008103

PATIENT
  Age: 77 Year
  Sex: Female

DRUGS (21)
  1. VITAMIN D3 [Concomitant]
     Active Substance: CHOLECALCIFEROL
  2. FASLODEX [Suspect]
     Active Substance: FULVESTRANT
     Dates: start: 201411
  3. AFINITOR [Suspect]
     Active Substance: EVEROLIMUS
     Dates: start: 20171011
  4. STARLIX [Concomitant]
     Active Substance: NATEGLINIDE
  5. ASPIRIN. [Concomitant]
     Active Substance: ASPIRIN
  6. FEMARA [Suspect]
     Active Substance: LETROZOLE
     Dates: start: 201608
  7. IBRANCE [Suspect]
     Active Substance: PALBOCICLIB
     Dates: start: 201608
  8. ARIMIDEX [Suspect]
     Active Substance: ANASTROZOLE
     Indication: BREAST CANCER
     Route: 048
  9. FISH OIL [Concomitant]
     Active Substance: FISH OIL
  10. BIOTIN [Concomitant]
     Active Substance: BIOTIN
  11. ZINC. [Concomitant]
     Active Substance: ZINC
  12. ARIMIDEX [Suspect]
     Active Substance: ANASTROZOLE
     Dates: start: 20160822
  13. FOLIC ACID. [Concomitant]
     Active Substance: FOLIC ACID
  14. OXYCODONE/ACETAMINOPHEN [Concomitant]
     Active Substance: ACETAMINOPHEN\OXYCODONE HYDROCHLORIDE
  15. AROMASIN [Suspect]
     Active Substance: EXEMESTANE
     Dates: start: 20170830
  16. VERZENIO [Suspect]
     Active Substance: ABEMACICLIB
     Dates: start: 20170108
  17. REMERON [Suspect]
     Active Substance: MIRTAZAPINE
     Dates: start: 201710
  18. XGEVA [Suspect]
     Active Substance: DENOSUMAB
     Dates: start: 201411
  19. VITAMIN B6 [Concomitant]
     Active Substance: PYRIDOXINE HYDROCHLORIDE
  20. VITAMIN C [Concomitant]
     Active Substance: ASCORBIC ACID
  21. HYDROCHLOROTHIAZIDE AND LISINOPRIL [Concomitant]
     Active Substance: HYDROCHLOROTHIAZIDE\LISINOPRIL

REACTIONS (25)
  - Hyperglycaemia [Unknown]
  - Hypercalcaemia [Unknown]
  - Mucosal inflammation [Unknown]
  - Dizziness [Recovered/Resolved]
  - Constipation [Unknown]
  - Hypogeusia [Unknown]
  - Decreased appetite [Recovered/Resolved]
  - Rash [Recovered/Resolved]
  - Tumour marker increased [Unknown]
  - Pruritus [Recovered/Resolved]
  - Pain in extremity [Recovered/Resolved]
  - Metastases to lymph nodes [Unknown]
  - Drug ineffective [Unknown]
  - Back pain [Unknown]
  - Malignant neoplasm progression [Unknown]
  - Metastases to bone [Unknown]
  - Intertrigo [Unknown]
  - Road traffic accident [Unknown]
  - Vision blurred [Recovered/Resolved]
  - Spinal compression fracture [Unknown]
  - Fatigue [Unknown]
  - Anaemia [Unknown]
  - Pain [Unknown]
  - Nausea [Recovered/Resolved]
  - Oedema peripheral [Unknown]

NARRATIVE: CASE EVENT DATE: 201307
